FAERS Safety Report 6123291-8 (Version None)
Quarter: 2009Q1

REPORT INFORMATION
  Report Type: 
  Country: None (occurrence: None)
  Receive Date: 20090318
  Receipt Date: 20090304
  Transmission Date: 20090719
  Serious: Yes (Hospitalization, Other)
  Sender: FDA-Public Use
  Company Number: KR-ROCHE-615730

PATIENT
  Sex: Male
  Weight: 50 kg

DRUGS (4)
  1. CAPECITABINE [Suspect]
     Indication: METASTATIC GASTRIC CANCER
     Dosage: TEMPORARILY INTERRUPTED: 19 FEB 09. LAST DOSE PRIOR TO SAE:18 FEB 09.
     Route: 048
     Dates: start: 20090210, end: 20090219
  2. OXALIPLATIN [Suspect]
     Indication: METASTATIC GASTRIC CANCER
     Route: 042
     Dates: start: 20090210
  3. METRONIDAZOLE [Concomitant]
     Dates: start: 20090219, end: 20090225
  4. ASPIRIN [Concomitant]
     Dates: start: 20090223

REACTIONS (2)
  - APPENDICITIS [None]
  - CORONARY ARTERY STENOSIS [None]
